FAERS Safety Report 6819912-4 (Version None)
Quarter: 2010Q3

REPORT INFORMATION
  Report Type: 
  Country: None (occurrence: None)
  Receive Date: 20100707
  Receipt Date: 20100628
  Transmission Date: 20110219
  Serious: Yes (Death, Hospitalization)
  Sender: FDA-Public Use
  Company Number: IT-ROCHE-621844

PATIENT
  Sex: Female
  Weight: 68 kg

DRUGS (12)
  1. METHOXY POLYETHYLENE GLYCOL-EPOETIN BETA [Suspect]
     Dosage: DOSE: 1 FL, UNITS 120 MICROGRAMS, FREQUENCY 1 FL/MONTH
     Route: 058
     Dates: start: 20090525, end: 20090817
  2. OMEPRAZEN [Concomitant]
     Dates: start: 20090302, end: 20090817
  3. APROVEL [Concomitant]
     Dates: start: 20090302, end: 20090817
  4. ZYLORIC [Concomitant]
     Dates: start: 20090302, end: 20090817
  5. ASPIRIN [Concomitant]
     Dates: start: 20090302, end: 20090817
  6. NITRO-DUR [Concomitant]
     Dates: start: 20090302, end: 20090817
  7. SIVASTIN [Concomitant]
     Dates: start: 20090302, end: 20090817
  8. CARDURA [Concomitant]
     Dates: start: 20090302, end: 20090817
  9. TAVANIC [Concomitant]
     Dates: start: 20090303, end: 20090817
  10. EPREX [Concomitant]
     Dates: start: 20090304, end: 20090817
  11. AEROSOL THERAPY [Concomitant]
     Dosage: DRUG NAME REPORTED AS AEROSOL TERAPIA.
     Dates: start: 20090305, end: 20090817
  12. CIPROXIN [Concomitant]
     Dates: start: 20090314, end: 20090817

REACTIONS (2)
  - CHEST PAIN [None]
  - PERICARDIAL EFFUSION [None]
